FAERS Safety Report 6872554-7 (Version None)
Quarter: 2010Q3

REPORT INFORMATION
  Report Type: 
  Country: None (occurrence: None)
  Receive Date: 20100723
  Receipt Date: 20081119
  Transmission Date: 20110219
  Serious: No
  Sender: FDA-Public Use
  Company Number: US-PFIZER INC-2008084397

PATIENT
  Sex: Female
  Weight: 79.38 kg

DRUGS (8)
  1. CHANTIX [Suspect]
     Indication: SMOKING CESSATION THERAPY
     Dates: start: 20080726
  2. BACLOFEN [Concomitant]
  3. NEURONTIN [Concomitant]
  4. VALIUM [Concomitant]
  5. FUROSEMIDE [Concomitant]
  6. MONTELUKAST SODIUM [Concomitant]
  7. NIASPAN [Concomitant]
  8. SOMA [Concomitant]

REACTIONS (9)
  - ABDOMINAL DISCOMFORT [None]
  - BRONCHITIS CHRONIC [None]
  - DIARRHOEA [None]
  - FATIGUE [None]
  - MUSCLE SPASMS [None]
  - NAUSEA [None]
  - NERVOUSNESS [None]
  - WHITE BLOOD CELL COUNT INCREASED [None]
  - WRONG TECHNIQUE IN DRUG USAGE PROCESS [None]
